FAERS Safety Report 12689912 (Version 1)
Quarter: 2016Q3

REPORT INFORMATION
  Report Type: Report from Study
  Country: CZ (occurrence: CZ)
  Receive Date: 20160826
  Receipt Date: 20160826
  Transmission Date: 20161109
  Serious: Yes (Death, Hospitalization, Other)
  Sender: FDA-Public Use
  Company Number: PHHY2015CZ174448

PATIENT
  Age: 62 Year
  Sex: Female

DRUGS (2)
  1. AFINITOR [Suspect]
     Active Substance: EVEROLIMUS
     Indication: BREAST CANCER
     Dosage: 10 MG, QD
     Route: 065
     Dates: start: 20150428, end: 20150921
  2. AFINITOR [Suspect]
     Active Substance: EVEROLIMUS
     Dosage: 10 MG, QD
     Route: 065
     Dates: start: 20151201, end: 20160204

REACTIONS (9)
  - General physical health deterioration [Unknown]
  - Pain [Unknown]
  - Malignant neoplasm progression [Unknown]
  - Hyperhidrosis [Unknown]
  - Oncologic complication [Fatal]
  - Hot flush [Unknown]
  - Breast cancer [Fatal]
  - Nausea [Unknown]
  - Drug ineffective [Unknown]

NARRATIVE: CASE EVENT DATE: 20160127
